FAERS Safety Report 7508101-6 (Version None)
Quarter: 2011Q2

REPORT INFORMATION
  Report Type: 
  Country: None (occurrence: None)
  Receive Date: 20110527
  Receipt Date: 20110119
  Transmission Date: 20111010
  Serious: Yes (Other)
  Sender: FDA-Public Use
  Company Number: US-BAYER-201038109NA

PATIENT
  Sex: Female
  Weight: 113.38 kg

DRUGS (18)
  1. CITALOPRAM HYDROBROMIDE [Concomitant]
     Indication: DEPRESSION
  2. YASMIN [Suspect]
     Indication: ACNE
     Dosage: UNK UNK, QD
     Dates: start: 20010101, end: 20030101
  3. DILTIAZEM [Concomitant]
     Indication: HYPERTENSION
  4. DROSPIRENONE AND ETHINYL ESTRADIOL [Suspect]
     Indication: ACNE
  5. LISINOPRIL [Concomitant]
  6. HYDRALAZINE HCL [Concomitant]
  7. ZESTRIL [Concomitant]
  8. LEVOTHYROXINE SODIUM [Concomitant]
     Indication: HYPOTHYROIDISM
  9. ADVIL LIQUI-GELS [Concomitant]
     Indication: PAIN
  10. YASMIN [Suspect]
     Indication: CONTRACEPTION
  11. TRIAMTERENE [Concomitant]
     Indication: DIURETIC THERAPY
  12. PROTONIX [Concomitant]
     Dosage: UNK
     Dates: start: 20031101
  13. YAZ [Suspect]
     Indication: ACNE
  14. PROMETHAZINE [Concomitant]
  15. LEVSIN [Concomitant]
  16. LEVOXYL [Concomitant]
  17. HYOSCYAMINE [Concomitant]
  18. NEXIUM [Concomitant]

REACTIONS (8)
  - CHOLECYSTITIS [None]
  - BACK PAIN [None]
  - BILIARY COLIC [None]
  - GALLBLADDER DISORDER [None]
  - DYSPEPSIA [None]
  - NAUSEA [None]
  - VOMITING [None]
  - DIARRHOEA [None]
